FAERS Safety Report 8392241-6 (Version None)
Quarter: 2012Q2

REPORT INFORMATION
  Report Type: 
  Country: None (occurrence: None)
  Receive Date: 20120529
  Receipt Date: 20120515
  Transmission Date: 20120825
  Serious: Yes (Hospitalization)
  Sender: FDA-Public Use
  Company Number: US-ROCHE-1013756

PATIENT
  Sex: Male
  Weight: 81 kg

DRUGS (11)
  1. MABTHERA [Suspect]
     Indication: CHRONIC LYMPHOCYTIC LEUKAEMIA
     Route: 042
     Dates: start: 20110816, end: 20110816
  2. ALLOPURINOL [Concomitant]
     Indication: PROPHYLAXIS
     Dates: start: 20110815
  3. ACETAMINOPHEN [Concomitant]
     Indication: PROPHYLAXIS
     Dates: start: 20110816
  4. OLMESARTAN MEDOXOMIL [Concomitant]
     Indication: HYPERTENSION
  5. SUMATRIPTAN [Concomitant]
     Indication: MIGRAINE
     Dates: start: 20110331
  6. DIPHENHYDRAMINE HCL [Concomitant]
     Indication: PROPHYLAXIS
     Dates: start: 20110816
  7. NAVITOCLAX [Suspect]
     Indication: CHRONIC LYMPHOCYTIC LEUKAEMIA
     Route: 048
     Dates: start: 20110817, end: 20111018
  8. TOPIRAMATE [Concomitant]
     Indication: MIGRAINE
  9. MABTHERA [Suspect]
     Route: 042
     Dates: start: 20110913, end: 20111018
  10. BENDAMUSTINE [Suspect]
     Indication: CHRONIC LYMPHOCYTIC LEUKAEMIA
     Route: 042
     Dates: start: 20110817, end: 20111019
  11. SIMVASTATIN [Concomitant]
     Indication: HYPERLIPIDAEMIA
     Dates: start: 20110331

REACTIONS (1)
  - INTERSTITIAL LUNG DISEASE [None]
